FAERS Safety Report 24292632 (Version 1)
Quarter: 2024Q3

REPORT INFORMATION
  Report Type: Spontaneous
  Country: RU (occurrence: RU)
  Receive Date: 20240906
  Receipt Date: 20240906
  Transmission Date: 20241017
  Serious: Yes (Other)
  Sender: B BRAUN
  Company Number: RU-B.Braun Medical Inc.-2161319

PATIENT
  Age: 32 Year
  Sex: Female
  Weight: 55 kg

DRUGS (3)
  1. SODIUM CHLORIDE [Suspect]
     Active Substance: SODIUM CHLORIDE
     Indication: Medication dilution
     Route: 041
  2. INFLIXIMAB [Suspect]
     Active Substance: INFLIXIMAB
  3. ETORICOXIB [Concomitant]
     Active Substance: ETORICOXIB

REACTIONS (5)
  - Dyspnoea [Recovering/Resolving]
  - Infusion related reaction [Recovering/Resolving]
  - Chills [Recovering/Resolving]
  - Sensation of foreign body [Recovering/Resolving]
  - Oropharyngeal pain [Recovering/Resolving]
